FAERS Safety Report 5623574-1 (Version None)
Quarter: 2008Q1

REPORT INFORMATION
  Report Type: 
  Country: None (occurrence: None)
  Receive Date: 20080212
  Receipt Date: 20080131
  Transmission Date: 20080703
  Serious: Yes (Other)
  Sender: FDA-Public Use
  Company Number: US-ELI_LILLY_AND_COMPANY-US200802000371

PATIENT
  Age: 12 Year
  Sex: Male

DRUGS (1)
  1. STRATTERA [Suspect]

REACTIONS (2)
  - ABDOMINAL PAIN UPPER [None]
  - HEPATIC ENZYME INCREASED [None]
